FAERS Safety Report 16409028 (Version 2)
Quarter: 2019Q2

REPORT INFORMATION
  Report Type: Spontaneous
  Country: CA (occurrence: CA)
  Receive Date: 20190610
  Receipt Date: 20190624
  Transmission Date: 20190711
  Serious: Yes (Hospitalization, Other)
  Sender: FDA-Public Use
  Company Number: CA-SA-2019SA153023

PATIENT
  Age: 64 Year
  Sex: Female

DRUGS (55)
  1. FOLIC ACID. [Suspect]
     Active Substance: FOLIC ACID
     Route: 048
  2. HYDROMORPHONE [Suspect]
     Active Substance: HYDROMORPHONE
  3. HYDROCHLOROTHIAZIDE. [Suspect]
     Active Substance: HYDROCHLOROTHIAZIDE
     Route: 048
  4. SULFAMETHOXAZOLE/TRIMETHOPRIM [Suspect]
     Active Substance: SULFAMETHOXAZOLE\TRIMETHOPRIM
  5. VITAMIN B-COMPLEX [Suspect]
     Active Substance: DEXPANTHENOL\NIACINAMIDE\PYRIDOXINE HYDROCHLORIDE\RIBOFLAVIN 5^-PHOSPHATE SODIUM\THIAMINE HYDROCHLORIDE
  6. ALENDRONATE SODIUM. [Suspect]
     Active Substance: ALENDRONATE SODIUM
     Route: 065
  7. CREATINE;FRUCTOSE [Suspect]
     Active Substance: CREATINE
  8. IMMUNE GLOBULIN IV [Suspect]
     Active Substance: HUMAN IMMUNOGLOBULIN G
     Route: 042
  9. SENNOSIDES. [Suspect]
     Active Substance: SENNOSIDES
  10. TIZANIDINE HYDROCHLORIDE. [Suspect]
     Active Substance: TIZANIDINE HYDROCHLORIDE
  11. WARFARIN SODIUM. [Suspect]
     Active Substance: WARFARIN SODIUM
     Route: 065
  12. CLARITHROMYCIN. [Suspect]
     Active Substance: CLARITHROMYCIN
     Dosage: 600 MG
     Route: 042
  13. DULOXETINE HYDROCHLORIDE. [Suspect]
     Active Substance: DULOXETINE HYDROCHLORIDE
     Indication: PAIN
     Dosage: CAPSULE 1 DF, QD
     Route: 048
  14. NICOTINAMIDE [Suspect]
     Active Substance: NIACINAMIDE
  15. PREDNISONE. [Suspect]
     Active Substance: PREDNISONE
  16. RANITIDINE. [Suspect]
     Active Substance: RANITIDINE
  17. DULOXETINE. [Suspect]
     Active Substance: DULOXETINE
     Dosage: 1 DF, QD (3 MG)
     Route: 048
  18. CLARITHROMYCIN. [Suspect]
     Active Substance: CLARITHROMYCIN
     Dosage: 10 MG
  19. NORTRIPTYLINE HYDROCHLORIDE. [Suspect]
     Active Substance: NORTRIPTYLINE HYDROCHLORIDE
     Route: 048
  20. ZANTAC [Suspect]
     Active Substance: RANITIDINE HYDROCHLORIDE
  21. SENOKOT [Suspect]
     Active Substance: SENNOSIDES
  22. BACLOFEN. [Suspect]
     Active Substance: BACLOFEN
     Route: 048
  23. SALMO SALAR OIL [Suspect]
     Active Substance: ATLANTIC SALMON OIL
     Dosage: UNK
     Route: 048
  24. RETINOL [Suspect]
     Active Substance: RETINOL
     Dosage: 3 DOSAGE FORM 1 EVERY1 DAY
     Route: 048
  25. BIFIDOBACTERIUM ANIMALIS SUBSP. ANIMALIS [Suspect]
     Active Substance: PROBIOTICS NOS
  26. DULOXETINE. [Suspect]
     Active Substance: DULOXETINE
     Dosage: 1 DF, QD
     Route: 048
  27. TIZANIDINE HYDROCHLORIDE. [Suspect]
     Active Substance: TIZANIDINE HYDROCHLORIDE
     Dosage: TABLET
     Route: 048
  28. VITAMIN B12 [VITAMIN B12 NOS] [Suspect]
     Active Substance: CYANOCOBALAMIN
  29. SALMO SALAR OIL [Suspect]
     Active Substance: ATLANTIC SALMON OIL
     Route: 065
  30. CALCIUM [Suspect]
     Active Substance: CALCIUM
     Route: 065
  31. MELATONIN [Suspect]
     Active Substance: MELATONIN
  32. LOPERAMIDE HYDROCHLORIDE. [Suspect]
     Active Substance: LOPERAMIDE HYDROCHLORIDE
     Dosage: UNK
  33. MOMETASONE FUROATE. [Suspect]
     Active Substance: MOMETASONE FUROATE
     Dosage: SPRAY, METERED DOSE
  34. RETINOL [Suspect]
     Active Substance: RETINOL
     Dosage: 1 DOSAGE FORM 1 EVERY 1 DAY
     Route: 048
  35. BACLOFEN. [Suspect]
     Active Substance: BACLOFEN
     Dosage: APO-BACLOFEN, TABLET
     Route: 048
  36. CALCIUM CARBONATE. [Suspect]
     Active Substance: CALCIUM CARBONATE
     Dosage: APO-CAL
     Route: 065
  37. MYCOPHENOLATE MOFETIL. [Suspect]
     Active Substance: MYCOPHENOLATE MOFETIL
  38. LORAZEPAM. [Suspect]
     Active Substance: LORAZEPAM
  39. LOPERAMIDE HYDROCHLORIDE. [Suspect]
     Active Substance: LOPERAMIDE HYDROCHLORIDE
     Route: 042
  40. COLECALCIFEROL [Suspect]
     Active Substance: CHOLECALCIFEROL
     Dosage: 400 IU
  41. ACIDOPHILUS [Suspect]
     Active Substance: LACTOBACILLUS ACIDOPHILUS
     Route: 048
  42. FISH OIL;OMEGA-3 FATTY ACIDS;OMEGA-6 FATTY ACIDS [Suspect]
     Active Substance: FISH OIL\OMEGA-3 FATTY ACIDS\OMEGA-6 FATTY ACIDS
     Dosage: UNK
  43. DOCUSATE SODIUM. [Suspect]
     Active Substance: DOCUSATE SODIUM
     Route: 065
  44. ANTI-THYMOCYTE GLOBULIN (RABBIT) NOS [Suspect]
     Active Substance: LAPINE T-LYMPHOCYTE IMMUNE GLOBULIN
     Route: 065
  45. ZOPICLONE [Suspect]
     Active Substance: ZOPICLONE
     Dosage: UNK
     Route: 048
  46. CALCIUM CARBONATE. [Suspect]
     Active Substance: CALCIUM CARBONATE
     Dosage: UNK
  47. CYANOCOBALAMIN. [Suspect]
     Active Substance: CYANOCOBALAMIN
     Route: 065
  48. CLARITHROMYCIN. [Suspect]
     Active Substance: CLARITHROMYCIN
     Dosage: UNK
     Route: 048
  49. DULOXETINE HYDROCHLORIDE. [Suspect]
     Active Substance: DULOXETINE HYDROCHLORIDE
     Dosage: 3 MG 1 DF QD
     Route: 048
  50. FUROSEMIDE. [Suspect]
     Active Substance: FUROSEMIDE
  51. PREGABALIN. [Suspect]
     Active Substance: PREGABALIN
  52. POTASSIUM CHLORIDE. [Suspect]
     Active Substance: POTASSIUM CHLORIDE
  53. ASCORBIC ACID. [Suspect]
     Active Substance: ASCORBIC ACID
  54. FISH OIL;OMEGA-3 FATTY ACIDS;OMEGA-6 FATTY ACIDS [Suspect]
     Active Substance: FISH OIL\OMEGA-3 FATTY ACIDS\OMEGA-6 FATTY ACIDS
     Dosage: UNK
     Route: 048
  55. SENNA ALEXANDRINA GLYCOSIDE EXTRACT [Suspect]
     Active Substance: HERBALS\SENNOSIDES

REACTIONS (4)
  - Coma [Recovered/Resolved]
  - Pneumonia aspiration [Recovered/Resolved]
  - Somnolence [Recovered/Resolved]
  - Gastrooesophageal reflux disease [Recovered/Resolved]
